FAERS Safety Report 14326342 (Version 6)
Quarter: 2018Q2

REPORT INFORMATION
  Report Type: Report from Study
  Country: US (occurrence: US)
  Receive Date: 20171227
  Receipt Date: 20180629
  Transmission Date: 20180711
  Serious: Yes (Other)
  Sender: FDA-Public Use
  Company Number: US-UCBSA-2017051932

PATIENT
  Age: 66 Year
  Sex: Female
  Weight: 106 kg

DRUGS (2)
  1. CERTOLIZUMAB PEGOL [Suspect]
     Active Substance: CERTOLIZUMAB PEGOL
     Dosage: 400 MG, EV 4 WEEKS
  2. CERTOLIZUMAB PEGOL [Suspect]
     Active Substance: CERTOLIZUMAB PEGOL
     Indication: RHEUMATOID ARTHRITIS
     Dosage: 400 MG, EV 2 WEEKS(QOW)
     Dates: start: 20171120

REACTIONS (10)
  - Sinusitis [Recovered/Resolved]
  - Ear infection [Recovered/Resolved]
  - Limb injury [Not Recovered/Not Resolved]
  - Injection site pruritus [Recovered/Resolved]
  - Injection site erythema [Recovered/Resolved]
  - Bacterial infection [Not Recovered/Not Resolved]
  - Exostosis [Recovering/Resolving]
  - Rheumatoid arthritis [Not Recovered/Not Resolved]
  - Eyelid infection [Not Recovered/Not Resolved]
  - Allergic sinusitis [Recovered/Resolved]

NARRATIVE: CASE EVENT DATE: 2017
